FAERS Safety Report 5445933-2 (Version None)
Quarter: 2007Q3

REPORT INFORMATION
  Report Type: 
  Country: None (occurrence: None)
  Receive Date: 20070904
  Receipt Date: 20070824
  Transmission Date: 20080115
  Serious: Yes (Disabling, Other)
  Sender: FDA-Public Use
  Company Number: 2007AL003515

PATIENT
  Age: 56 Year
  Sex: Female

DRUGS (10)
  1. FLUOXETINE [Suspect]
     Indication: DEPRESSION
     Dosage: 40 MG;QD;PO
     Route: 048
     Dates: start: 20010510
  2. OXYCODONE HCL [Suspect]
     Indication: POSTOPERATIVE ANALGESIA
     Dosage: 20 MG;BID
  3. TRAMADOL HCL [Concomitant]
  4. PARACETAMOL WIT CODEINE [Concomitant]
  5. LANSOPRAZOLE [Concomitant]
  6. BENDROFLUMETHIAZIDE [Concomitant]
  7. RAMIPRIL [Concomitant]
  8. DICLOFENAC [Concomitant]
  9. AMLODIPINE [Concomitant]
  10. SIMVASTATIN [Concomitant]

REACTIONS (3)
  - DRUG INTERACTION [None]
  - HALLUCINATION [None]
  - MYOCLONUS [None]
